FAERS Safety Report 12082573 (Version 2)
Quarter: 2016Q2

REPORT INFORMATION
  Report Type: Spontaneous
  Country: US (occurrence: US)
  Receive Date: 20160217
  Receipt Date: 20160513
  Transmission Date: 20160815
  Serious: No
  Sender: FDA-Public Use
  Company Number: US-IROKO PHARMACEUTICALS LLC-US-I09001-16-00002

PATIENT
  Age: 61 Year
  Sex: Male

DRUGS (3)
  1. ZORVOLEX [Suspect]
     Active Substance: DICLOFENAC
     Route: 048
     Dates: start: 20151031, end: 2015
  2. ZORVOLEX [Suspect]
     Active Substance: DICLOFENAC
     Route: 048
     Dates: start: 20151228, end: 201512
  3. ZORVOLEX [Suspect]
     Active Substance: DICLOFENAC
     Indication: BACK PAIN
     Route: 048

REACTIONS (2)
  - Swollen tongue [Recovered/Resolved]
  - Paraesthesia oral [Recovered/Resolved]

NARRATIVE: CASE EVENT DATE: 20151031
